FAERS Safety Report 18000904 (Version 2)
Quarter: 2021Q1

REPORT INFORMATION
  Report Type: Spontaneous
  Country: US (occurrence: US)
  Receive Date: 20200709
  Receipt Date: 20210312
  Transmission Date: 20210419
  Serious: Yes (Death, Hospitalization, Other)
  Sender: FDA-Public Use
  Company Number: US-TEVA-2020-US-1799605

PATIENT
  Age: 65 Year
  Sex: Female
  Weight: 79.8 kg

DRUGS (8)
  1. VALSARTAN/HYDROCHLOROTHIAZIDE QUALITEST [Suspect]
     Active Substance: HYDROCHLOROTHIAZIDE\VALSARTAN
     Indication: HYPERTENSION
     Dosage: 160?12.5MG
     Route: 065
     Dates: start: 20141002, end: 201503
  2. CALCIUM D [Concomitant]
     Active Substance: CALCIUM\VITAMIN D
     Route: 048
  3. CIPRO [Concomitant]
     Active Substance: CIPROFLOXACIN HYDROCHLORIDE
     Route: 048
  4. VALSARTAN/HYDROCHLOROTHIAZIDE SANDOZ [Suspect]
     Active Substance: HYDROCHLOROTHIAZIDE\VALSARTAN
     Indication: HYPERTENSION
     Dosage: 160?12.5MG
     Route: 065
     Dates: start: 20130106, end: 201408
  5. VALSARTAN/HYDROCHLOROTHIAZIDE AUROBINDO [Suspect]
     Active Substance: HYDROCHLOROTHIAZIDE\VALSARTAN
     Indication: HYPERTENSION
     Dosage: 160?12.5MG
     Route: 065
     Dates: start: 20140805, end: 201709
  6. ECOTRIN [Concomitant]
     Active Substance: ASPIRIN
     Route: 048
  7. MELOXICAM. [Concomitant]
     Active Substance: MELOXICAM
     Route: 048
  8. TRAMADOL 50MG [Concomitant]
     Active Substance: TRAMADOL
     Route: 048

REACTIONS (2)
  - Hepatic cancer [Not Recovered/Not Resolved]
  - Cholangiocarcinoma [Not Recovered/Not Resolved]
